FAERS Safety Report 24592547 (Version 1)
Quarter: 2024Q4

REPORT INFORMATION
  Report Type: Spontaneous
  Country: DE (occurrence: DE)
  Receive Date: 20241108
  Receipt Date: 20241108
  Transmission Date: 20250115
  Serious: Yes (Death)
  Sender: CHEPLAPHARM
  Company Number: DE-CHEPLA-2024014137

PATIENT
  Age: 30 Year
  Sex: Female
  Weight: 55 kg

DRUGS (3)
  1. FLUNITRAZEPAM [Interacting]
     Active Substance: FLUNITRAZEPAM
     Route: 048
  2. OLANZAPINE [Interacting]
     Active Substance: OLANZAPINE
  3. MIRTAZAPINE [Interacting]
     Active Substance: MIRTAZAPINE

REACTIONS (2)
  - Toxicity to various agents [Fatal]
  - Asphyxia [Fatal]
